FAERS Safety Report 9548773 (Version 1)
Quarter: 2013Q3

REPORT INFORMATION
  Report Type: Spontaneous
  Country: GB (occurrence: None)
  Receive Date: 20130919
  Receipt Date: 20130919
  Transmission Date: 20140515
  Serious: Yes (Hospitalization)
  Sender: FDA-Public Use
  Company Number: 2013AP008097

PATIENT
  Age: 68 Year
  Sex: Male

DRUGS (10)
  1. OMEPRAZOLE [Suspect]
  2. SALBUTAMOL (SALBUTAMOL) [Concomitant]
  3. SERETIDE (SERETIDE) [Concomitant]
  4. ROSUVASTATIN (ROSUVASTATIN) [Concomitant]
  5. AMLODIPINE (AMLODIPINE) [Concomitant]
  6. LISINOPRIL (LISINOPRIL) [Concomitant]
  7. METFORMIN (METFORMIN) [Concomitant]
  8. GLICLAZIDE (GLICLAZIDE) [Concomitant]
  9. PIOGLITAZONE (PIOGLITAZONE) [Concomitant]
  10. INDAPAMIDE [Suspect]
     Indication: HYPERTENSION

REACTIONS (4)
  - Hypomagnesaemia [None]
  - Hypocalcaemia [None]
  - Potentiating drug interaction [None]
  - Chronic obstructive pulmonary disease [None]
